FAERS Safety Report 5192551-X (Version None)
Quarter: 2006Q4

REPORT INFORMATION
  Report Type: 
  Country: None (occurrence: None)
  Receive Date: 20061220
  Receipt Date: 20061130
  Transmission Date: 20070319
  Serious: Yes (Death)
  Sender: FDA-Public Use
  Company Number: 2006SP007540

PATIENT
  Age: 66 Year
  Sex: Male

DRUGS (3)
  1. RIBAVIRIN [Suspect]
     Indication: RESPIRATORY SYNCYTIAL VIRUS INFECTION
     Dosage: SEE IMAGE
     Route: 058
     Dates: start: 20060110, end: 20060110
  2. RIBAVIRIN [Suspect]
     Indication: RESPIRATORY SYNCYTIAL VIRUS INFECTION
     Dosage: SEE IMAGE
     Route: 058
     Dates: start: 20060111, end: 20060111
  3. RIBAVIRIN [Suspect]
     Indication: RESPIRATORY SYNCYTIAL VIRUS INFECTION
     Dosage: SEE IMAGE
     Route: 058
     Dates: start: 20060112, end: 20060112

REACTIONS (1)
  - DEATH [None]
